FAERS Safety Report 8060669-X (Version None)
Quarter: 2012Q1

REPORT INFORMATION
  Report Type: 
  Country: None (occurrence: None)
  Receive Date: 20120120
  Receipt Date: 20111221
  Transmission Date: 20120608
  Serious: Yes (Hospitalization)
  Sender: FDA-Public Use
  Company Number: PL-GILEAD-2009-0023207

PATIENT
  Sex: Male

DRUGS (9)
  1. QUINAPRIL [Concomitant]
     Dates: start: 20090217
  2. ACETYLSALICYLIC ACID SRT [Concomitant]
     Dates: start: 20090217
  3. EMTRICITABINE/TENOFOVIR DISOPROXIL FUMARATE [Suspect]
     Indication: HIV INFECTION
     Route: 048
     Dates: start: 20090629, end: 20090727
  4. EFAVIRENZ PLACEBO [Concomitant]
     Indication: HIV INFECTION
     Dosage: UNK
     Dates: start: 20090602, end: 20090727
  5. KETOPROFEN [Concomitant]
     Dates: end: 20090624
  6. METAMIZOLE [Concomitant]
     Dates: start: 20090613, end: 20090615
  7. AMLODIPINE [Concomitant]
     Dates: start: 20090217
  8. EMTRICITABINE/TENOFOVIR DISOPROXIL FUMARATE [Suspect]
     Route: 048
     Dates: start: 20090602, end: 20090627
  9. BISOPROLOL [Concomitant]
     Dates: start: 20090217

REACTIONS (2)
  - PYELONEPHRITIS [None]
  - LEUKOCYTURIA [None]
